FAERS Safety Report 16585650 (Version 3)
Quarter: 2020Q2

REPORT INFORMATION
  Report Type: Report from Study
  Country: CA (occurrence: CA)
  Receive Date: 20190717
  Receipt Date: 20200512
  Transmission Date: 20200713
  Serious: Yes (Other)
  Sender: FDA-Public Use
  Company Number: PHHY2019CA101859

PATIENT
  Age: 71 Year
  Sex: Female

DRUGS (8)
  1. COSENTYX [Suspect]
     Active Substance: SECUKINUMAB
     Dosage: 300 MG, QMO
     Route: 058
  2. HYDROCHLOROTHIAZIDE. [Concomitant]
     Active Substance: HYDROCHLOROTHIAZIDE
     Indication: PRODUCT USED FOR UNKNOWN INDICATION
     Dosage: UNK
     Route: 065
  3. COSENTYX [Suspect]
     Active Substance: SECUKINUMAB
     Dosage: 150 MG, QW
     Route: 058
     Dates: start: 20190429
  4. COSENTYX [Suspect]
     Active Substance: SECUKINUMAB
     Dosage: 150 MG, QMO
     Route: 058
  5. MEDROL [Concomitant]
     Active Substance: METHYLPREDNISOLONE
     Indication: PRODUCT USED FOR UNKNOWN INDICATION
     Dosage: UNK
     Route: 065
  6. COSENTYX [Suspect]
     Active Substance: SECUKINUMAB
     Indication: PSORIATIC ARTHROPATHY
     Dosage: 150 MG, QW
     Route: 058
     Dates: start: 20190428
  7. COSENTYX [Suspect]
     Active Substance: SECUKINUMAB
     Dosage: 300 MG, Q2W
     Route: 058
  8. COSENTYX [Suspect]
     Active Substance: SECUKINUMAB
     Dosage: 450 MG, QMO
     Route: 058

REACTIONS (28)
  - Musculoskeletal pain [Unknown]
  - Soft tissue swelling [Unknown]
  - Periarthritis calcarea [Unknown]
  - Intervertebral disc degeneration [Unknown]
  - Articular calcification [Unknown]
  - Product prescribing error [Unknown]
  - Peripheral swelling [Unknown]
  - Erythema [Unknown]
  - Incorrect dose administered [Unknown]
  - Bone density decreased [Unknown]
  - Oral herpes [Unknown]
  - Psoriasis [Unknown]
  - Periarticular disorder [Unknown]
  - Arthritis [Unknown]
  - Gait disturbance [Unknown]
  - Skin warm [Unknown]
  - Gout [Unknown]
  - Hypoacusis [Unknown]
  - Device issue [Unknown]
  - Pelvic pain [Unknown]
  - Arthralgia [Unknown]
  - Osteoarthritis [Unknown]
  - Bone erosion [Unknown]
  - Concomitant disease aggravated [Unknown]
  - Psoriatic arthropathy [Unknown]
  - Chondropathy [Unknown]
  - Bone disorder [Unknown]
  - Wrong technique in device usage process [Unknown]

NARRATIVE: CASE EVENT DATE: 20190428
